FAERS Safety Report 9408427 (Version 4)
Quarter: 2013Q4

REPORT INFORMATION
  Report Type: Spontaneous
  Country: US (occurrence: US)
  Receive Date: 20130718
  Receipt Date: 20131017
  Transmission Date: 20140711
  Serious: Yes (Hospitalization)
  Sender: FDA-Public Use
  Company Number: US-BAXTER-2013BAX027700

PATIENT
  Age: 11 Year
  Sex: Male
  Weight: 35 kg

DRUGS (6)
  1. RECOMBINATE [Suspect]
     Indication: HAEMOPHILIA
     Route: 042
     Dates: start: 201306, end: 20130705
  2. RECOMBINATE [Suspect]
     Route: 042
     Dates: start: 20130709, end: 20130709
  3. AMICAR [Concomitant]
     Indication: MOUTH HAEMORRHAGE
     Route: 048
     Dates: start: 20020211
  4. TYLENOL [Concomitant]
     Indication: HEADACHE
     Route: 048
  5. ZYRTEC [Concomitant]
     Indication: SEASONAL ALLERGY
     Route: 048
     Dates: start: 2010
  6. ADVATE [Concomitant]
     Indication: HAEMOPHILIA
     Route: 042
     Dates: start: 2009, end: 2010

REACTIONS (4)
  - Cerebral haemorrhage [Recovered/Resolved]
  - Headache [Recovered/Resolved]
  - Otitis externa [Recovered/Resolved]
  - Ear pain [Recovered/Resolved]
